FAERS Safety Report 7723917-9 (Version None)
Quarter: 2011Q3

REPORT INFORMATION
  Report Type: 
  Country: None (occurrence: None)
  Receive Date: 20110901
  Receipt Date: 20110829
  Transmission Date: 20111222
  Serious: Yes (Hospitalization, Other)
  Sender: FDA-Public Use
  Company Number: US-B.I. PHARMACEUTICALS,INC./RIDGEFIELD-2011-BP-19212BP

PATIENT
  Sex: Male
  Weight: 95.2 kg

DRUGS (12)
  1. JANUVIA [Concomitant]
  2. METOPROLOL TARTRATE [Concomitant]
  3. ISORDIL [Concomitant]
  4. PRADAXA [Suspect]
     Dosage: 75 MG
     Dates: start: 20110721
  5. PRADAXA [Suspect]
     Indication: ATRIAL FIBRILLATION
     Dosage: 300 MG
     Route: 048
     Dates: end: 20110719
  6. METFORMIN [Concomitant]
  7. DIGOXIN [Concomitant]
  8. LISINOPRIL [Concomitant]
  9. CLONIDINE [Concomitant]
  10. LASIX [Concomitant]
  11. ACTONEL [Concomitant]
  12. PLAVIX [Concomitant]

REACTIONS (3)
  - HAEMOGLOBIN DECREASED [None]
  - UPPER GASTROINTESTINAL HAEMORRHAGE [None]
  - SICK SINUS SYNDROME [None]
